FAERS Safety Report 9105462 (Version 4)
Quarter: 2013Q1

REPORT INFORMATION
  Report Type: Report from Study
  Country: PH (occurrence: PH)
  Receive Date: 20130207
  Receipt Date: 20130315
  Transmission Date: 20140127
  Serious: Yes (Life-Threatening, Hospitalization)
  Sender: FDA-Public Use
  Company Number: PH-EISAI INC-E2007-00646-CLI-PH

PATIENT
  Age: 18 Year
  Sex: Male
  Weight: 55 kg

DRUGS (5)
  1. E2007 (PERAMPANEL) [Suspect]
     Indication: EPILEPSY
     Dosage: DOUBLE BLIND
     Route: 048
     Dates: start: 20091117, end: 20100320
  2. E2007 (PERAMPANEL) [Suspect]
     Route: 048
     Dates: start: 20100321, end: 20100515
  3. PHENOBARBITAL [Concomitant]
     Indication: CONVULSION
     Dosage: UNKNOWN
     Route: 048
  4. CARBAMAZEPINE [Concomitant]
  5. VALPROIC ACID [Concomitant]

REACTIONS (3)
  - Traumatic intracranial haemorrhage [Recovered/Resolved]
  - Grand mal convulsion [Recovered/Resolved]
  - Fall [Recovered/Resolved]
